FAERS Safety Report 7914157-9 (Version None)
Quarter: 2011Q4

REPORT INFORMATION
  Report Type: 
  Country: None (occurrence: None)
  Receive Date: 20111115
  Receipt Date: 20111115
  Transmission Date: 20120403
  Serious: Yes (Hospitalization)
  Sender: FDA-Public Use
  Company Number: None

PATIENT
  Sex: Female

DRUGS (1)
  1. LAMOTRIGINE [Suspect]
     Indication: BIPOLAR DISORDER
     Dates: start: 20110914, end: 20111014

REACTIONS (16)
  - ORAL PAIN [None]
  - RESPIRATORY DISTRESS [None]
  - DIZZINESS [None]
  - STOMATITIS [None]
  - PARAESTHESIA [None]
  - CONJUNCTIVITIS [None]
  - DRY EYE [None]
  - HYPOAESTHESIA [None]
  - VISION BLURRED [None]
  - EYE PAIN [None]
  - FATIGUE [None]
  - PYREXIA [None]
  - COUGH [None]
  - VIRAL INFECTION [None]
  - STEVENS-JOHNSON SYNDROME [None]
  - AMNIOTIC MEMBRANE GRAFT [None]
